FAERS Safety Report 17974337 (Version 1)
Quarter: 2020Q3

REPORT INFORMATION
  Report Type: Spontaneous
  Country: US (occurrence: US)
  Receive Date: 20200702
  Receipt Date: 20200702
  Transmission Date: 20201103
  Serious: Yes (Disabling)
  Sender: FDA-Public Use
  Company Number: None

PATIENT
  Age: 60 Year
  Sex: Female
  Weight: 69.75 kg

DRUGS (1)
  1. METFORMIN ECL ER 500 MG [Suspect]
     Active Substance: METFORMIN HYDROCHLORIDE
     Indication: DIABETES MELLITUS
     Dosage: ?          QUANTITY:100 TABLET(S);?
     Route: 048
     Dates: start: 20200101, end: 20200702

REACTIONS (2)
  - Recalled product administered [None]
  - Constipation [None]

NARRATIVE: CASE EVENT DATE: 20200601
